FAERS Safety Report 6856498-2 (Version None)
Quarter: 2010Q3

REPORT INFORMATION
  Report Type: 
  Country: None (occurrence: None)
  Receive Date: 20100719
  Receipt Date: 20100709
  Transmission Date: 20110219
  Serious: Yes (Hospitalization, Other)
  Sender: FDA-Public Use
  Company Number: JP-ROCHE-708298

PATIENT
  Weight: 11 kg

DRUGS (3)
  1. ROCEPHIN [Suspect]
     Indication: BRONCHITIS
     Dosage: OTHER INDICATION OTITIS MEDIA ACUTE
     Route: 041
     Dates: start: 20090513, end: 20090513
  2. ROCEPHIN [Suspect]
     Route: 041
     Dates: start: 20091005, end: 20091005
  3. ROCEPHIN [Suspect]
     Route: 041
     Dates: start: 20100603, end: 20100603

REACTIONS (1)
  - ANAPHYLACTIC SHOCK [None]
